FAERS Safety Report 8447400-0 (Version None)
Quarter: 2012Q2

REPORT INFORMATION
  Report Type: 
  Country: None (occurrence: None)
  Receive Date: 20120619
  Receipt Date: 20120613
  Transmission Date: 20120825
  Serious: Yes (Hospitalization)
  Sender: FDA-Public Use
  Company Number: FR-PFIZER INC-2012142052

PATIENT
  Age: 45 Year
  Sex: Female

DRUGS (5)
  1. ORAMORPH SR [Concomitant]
     Dosage: 20 MG, EVERY 4 HOURS
  2. SUTENT [Suspect]
     Indication: RENAL CANCER METASTATIC
     Dosage: UNK
     Dates: start: 20081217, end: 20090113
  3. SUTENT [Suspect]
     Indication: METASTASES TO PERITONEUM
     Dosage: UNK
     Dates: start: 20090209, end: 20090213
  4. SUTENT [Suspect]
     Indication: ABDOMINAL MASS
  5. DURAGESIC-100 [Concomitant]
     Dosage: 50 UG/72 H

REACTIONS (3)
  - INTRA-ABDOMINAL HAEMORRHAGE [None]
  - ANAEMIA [None]
  - HAEMORRHAGE [None]
